FAERS Safety Report 6616858-1 (Version None)
Quarter: 2010Q1

REPORT INFORMATION
  Report Type: 
  Country: None (occurrence: None)
  Receive Date: 20100301
  Receipt Date: 20100212
  Transmission Date: 20100710
  Serious: Yes (Death)
  Sender: FDA-Public Use
  Company Number: IPC201002-000047

PATIENT
  Age: 72 Year
  Sex: Female

DRUGS (3)
  1. METOPROLOL TARTRATE [Suspect]
     Dosage: ORAL
     Route: 048
  2. VERAPAMIL [Suspect]
     Dosage: ORAL
     Route: 048
  3. AMLODIPINE BESYLATE AND ATORVASTATIN CALIUM [Suspect]
     Dosage: ORAL
     Route: 048

REACTIONS (1)
  - COMPLETED SUICIDE [None]
